FAERS Safety Report 4625648-0 (Version None)
Quarter: 2005Q1

REPORT INFORMATION
  Report Type: 
  Country: None (occurrence: None)
  Receive Date: 20050330
  Receipt Date: 20050315
  Transmission Date: 20050727
  Serious: Yes (Life-Threatening)
  Sender: FDA-Public Use
  Company Number: EWC050343172

PATIENT
  Age: 71 Year
  Sex: Male

DRUGS (2)
  1. GEMCITABINE HYDROCHLORIDE-IV (GEMCITABINE) [Suspect]
     Indication: BLADDER CANCER
     Dosage: 2128 MG/1 DAY
     Dates: start: 20040422, end: 20040716
  2. CISPLATIN [Concomitant]

REACTIONS (1)
  - MYOCARDIAL INFARCTION [None]
